FAERS Safety Report 10425720 (Version 1)
Quarter: 2014Q3

REPORT INFORMATION
  Report Type: Report from Study
  Country: GB (occurrence: GB)
  Receive Date: 20140903
  Receipt Date: 20140903
  Transmission Date: 20150326
  Serious: Yes (Hospitalization)
  Sender: FDA-Public Use
  Company Number: GB-ACCORD-025654

PATIENT
  Age: 33 Year
  Sex: Female

DRUGS (8)
  1. TRASTUZUMAB [Concomitant]
     Active Substance: TRASTUZUMAB
     Indication: BREAST CANCER
     Dosage: DATE OF LAST DOSE PRIOR TO SAE: 13/JUN/2013
     Route: 058
     Dates: start: 20130319
  2. CARBOPLATIN. [Suspect]
     Active Substance: CARBOPLATIN
     Indication: PRODUCT USED FOR UNKNOWN INDICATION
     Dosage: FORM:UNKNOWN
     Route: 065
     Dates: start: 20130613
  3. LUPRON DEPOT [Concomitant]
     Active Substance: LEUPROLIDE ACETATE
     Dosage: DAILY DOSE: 3 IN 1 M
     Route: 058
     Dates: start: 20130613
  4. APREPITANT [Concomitant]
     Active Substance: APREPITANT
     Route: 048
     Dates: start: 20130613
  5. METOCLOPRAMIDE. [Concomitant]
     Active Substance: METOCLOPRAMIDE
     Dates: start: 20130502, end: 20130524
  6. DOCETAXEL [Suspect]
     Active Substance: DOCETAXEL
     Indication: PRODUCT USED FOR UNKNOWN INDICATION
     Dosage: FORM:UNKNOWN
     Route: 065
     Dates: start: 20130613
  7. MOVICOL [Concomitant]
     Active Substance: POLYETHYLENE GLYCOL 3350\POTASSIUM CHLORIDE\SODIUM BICARBONATE\SODIUM CHLORIDE
  8. CYCLIZINE [Concomitant]
     Active Substance: CYCLIZINE
     Dates: start: 20130513, end: 20130613

REACTIONS (4)
  - Neutropenic sepsis [Recovered/Resolved]
  - Chest discomfort [Recovering/Resolving]
  - Oropharyngeal pain [Unknown]
  - Productive cough [Unknown]

NARRATIVE: CASE EVENT DATE: 20130621
